FAERS Safety Report 12207102 (Version 1)
Quarter: 2016Q1

REPORT INFORMATION
  Report Type: Spontaneous
  Country: US (occurrence: None)
  Receive Date: 20160323
  Receipt Date: 20160323
  Transmission Date: 20160526
  Serious: No
  Sender: FDA-Public Use
  Company Number: None

PATIENT
  Age: 66 Year
  Sex: Female
  Weight: 81.65 kg

DRUGS (8)
  1. METOPROLOL ER (SUCC) TAB 100MG [Concomitant]
     Active Substance: METOPROLOL SUCCINATE
  2. NAPROXEN SODIUM. [Concomitant]
     Active Substance: NAPROXEN SODIUM
  3. REPATHA [Suspect]
     Active Substance: EVOLOCUMAB
     Indication: BLOOD CHOLESTEROL INCREASED
     Dosage: 140 MG/ML PREFILLED AUTOINJECTOR ONCE EVERY 2 WKS INJECTION
     Dates: start: 20160229, end: 20160229
  4. XANAX [Concomitant]
     Active Substance: ALPRAZOLAM
  5. VENTOLIN [Concomitant]
     Active Substance: ALBUTEROL SULFATE
  6. COENZYME Q10 [Concomitant]
     Active Substance: UBIDECARENONE
  7. TYLENOL [Concomitant]
     Active Substance: ACETAMINOPHEN
  8. OMEPRAZOLE. [Concomitant]
     Active Substance: OMEPRAZOLE

REACTIONS (8)
  - Cough [None]
  - Oropharyngeal pain [None]
  - Headache [None]
  - Nausea [None]
  - Influenza like illness [None]
  - Dyspnoea [None]
  - Pyrexia [None]
  - Malaise [None]

NARRATIVE: CASE EVENT DATE: 20160229
